FAERS Safety Report 5849255-7 (Version None)
Quarter: 2008Q3

REPORT INFORMATION
  Report Type: 
  Country: None (occurrence: None)
  Receive Date: 20080819
  Receipt Date: 20071226
  Transmission Date: 20090109
  Serious: No
  Sender: FDA-Public Use
  Company Number: US-BAYER-200810791NA

PATIENT
  Age: 39 Year
  Sex: Male

DRUGS (1)
  1. BETASERON [Suspect]
     Indication: UNEVALUABLE EVENT
     Route: 065

REACTIONS (2)
  - INJECTION SITE ATROPHY [None]
  - INJECTION SITE INFECTION [None]
